FAERS Safety Report 23448425 (Version 1)
Quarter: 2024Q1

REPORT INFORMATION
  Report Type: Spontaneous
  Country: FR (occurrence: FR)
  Receive Date: 20240127
  Receipt Date: 20240127
  Transmission Date: 20240409
  Serious: Yes (Death, Hospitalization, Other)
  Sender: FDA-Public Use
  Company Number: FR-AMGEN-FRASP2024013109

PATIENT

DRUGS (8)
  1. PEGFILGRASTIM [Suspect]
     Active Substance: PEGFILGRASTIM
     Indication: Autologous haematopoietic stem cell transplant
     Dosage: 5 MICROGRAM/KILOGRAM, PER 12 HOURS DURING 5 DAYS
     Route: 065
  2. PEGFILGRASTIM [Suspect]
     Active Substance: PEGFILGRASTIM
     Indication: Off label use
  3. ETOPOSIDE [Concomitant]
     Active Substance: ETOPOSIDE
     Dosage: 200 MILLIGRAM/SQ. METER, QD, AS A SINGLE ONE-HOUR INFUSION FROM DAY 6 TO DAY 3
  4. ETOPOSIDE [Concomitant]
     Active Substance: ETOPOSIDE
     Dosage: 400 MILLIGRAM/SQ. METER
  5. CYTARABINE [Concomitant]
     Active Substance: CYTARABINE
     Dosage: 200 MILLIGRAM/SQ. METER, QD, AS A CONTINIOUS INFUSION FROM DAY 6 TO DAY 3
  6. CYTARABINE [Concomitant]
     Active Substance: CYTARABINE
     Dosage: 400 MILLIGRAM/SQ. METER
  7. CARMUSTINE [Concomitant]
     Active Substance: CARMUSTINE
     Dosage: 300 MILLIGRAM/SQ. METER, AT DAY 7 BEFORE TRANSPLANTATION
  8. MELPHALAN [Concomitant]
     Active Substance: MELPHALAN
     Dosage: 140 MILLIGRAM/SQ. METER, AT DAY 2 BEFORE AUTOLOGOUS STEM CELL REINJECTION

REACTIONS (16)
  - Death [Fatal]
  - Unevaluable event [Unknown]
  - Neutropenia [Unknown]
  - Bacteraemia [Unknown]
  - Neoplasm malignant [Unknown]
  - Febrile neutropenia [Unknown]
  - Hodgkin^s disease [Unknown]
  - Anaemia [Unknown]
  - Thrombocytopenia [Unknown]
  - Mucosal inflammation [Unknown]
  - Infection [Unknown]
  - Diarrhoea [Unknown]
  - Weight decreased [Unknown]
  - Malnutrition [Unknown]
  - Pyrexia [Unknown]
  - Therapy partial responder [Unknown]
